FAERS Safety Report 7152690-0 (Version None)
Quarter: 2010Q4

REPORT INFORMATION
  Report Type: 
  Country: None (occurrence: None)
  Receive Date: 20101123
  Receipt Date: 20100916
  Transmission Date: 20110411
  Serious: No
  Sender: FDA-Public Use
  Company Number: 018315

PATIENT
  Sex: Male
  Weight: 71.7 kg

DRUGS (6)
  1. CIMZIA [Suspect]
     Indication: CROHN'S DISEASE
     Dosage: TWO SHOTS MONTHLY SUBCUTANEOUS
     Route: 058
     Dates: start: 20100728
  2. COLAZAL [Concomitant]
  3. PREDNISONE [Concomitant]
  4. VITAMIN TAB [Concomitant]
  5. HUMIRA [Concomitant]
  6. ALBUTEROL [Concomitant]

REACTIONS (6)
  - CROHN'S DISEASE [None]
  - DIARRHOEA [None]
  - DIVERTICULITIS [None]
  - DRUG INEFFECTIVE [None]
  - ONYCHOMYCOSIS [None]
  - PYREXIA [None]
